FAERS Safety Report 6380387-3 (Version None)
Quarter: 2009Q3

REPORT INFORMATION
  Report Type: 
  Country: None (occurrence: None)
  Receive Date: 20090924
  Receipt Date: 20090911
  Transmission Date: 20100115
  Serious: Yes (Hospitalization, Other)
  Sender: FDA-Public Use
  Company Number: ACO_00595_2009

PATIENT
  Age: 46 Year
  Sex: Male

DRUGS (6)
  1. TIZANIDINE HYDROCHLORIDE [Suspect]
     Indication: CLUSTER HEADACHE
     Dosage: (2 MG)
  2. VALPROIC ACID [Concomitant]
  3. RIVOTRIL [Concomitant]
  4. METADON /00068902/ [Concomitant]
  5. TRAMADOL HCL [Concomitant]
  6. ADEPSIQUE [Concomitant]

REACTIONS (11)
  - AMPHETAMINES POSITIVE [None]
  - BLOOD PRESSURE DECREASED [None]
  - DISORIENTATION [None]
  - DRUG SCREEN POSITIVE [None]
  - HEADACHE [None]
  - HEART RATE INCREASED [None]
  - OXYGEN SATURATION DECREASED [None]
  - PYREXIA [None]
  - RESPIRATORY RATE DECREASED [None]
  - SOMNOLENCE [None]
  - VOMITING [None]
